FAERS Safety Report 8249718-3 (Version None)
Quarter: 2012Q2

REPORT INFORMATION
  Report Type: 
  Country: None (occurrence: None)
  Receive Date: 20120402
  Receipt Date: 20120323
  Transmission Date: 20120825
  Serious: Yes (Other)
  Sender: FDA-Public Use
  Company Number: US-BRISTOL-MYERS SQUIBB COMPANY-16473142

PATIENT
  Age: 56 Year
  Sex: Male
  Weight: 92 kg

DRUGS (3)
  1. CARBOPLATIN [Suspect]
     Indication: NON-SMALL CELL LUNG CANCER
     Dosage: 1 DF:6AUC
     Route: 042
     Dates: start: 20100507
  2. PACLITAXEL [Suspect]
     Indication: NON-SMALL CELL LUNG CANCER
     Route: 042
     Dates: start: 20100507
  3. CETUXIMAB [Suspect]
     Indication: NON-SMALL CELL LUNG CANCER
     Dosage: DAY 1 AND CYC1 400MG/M2 LOADING DOSE 250MG/M2 LAST DOSE ON 20AUG2010.
     Route: 042
     Dates: start: 20100507

REACTIONS (3)
  - HYPERGLYCAEMIA [None]
  - GLUCOSE TOLERANCE IMPAIRED [None]
  - BACK PAIN [None]
